FAERS Safety Report 24824792 (Version 1)
Quarter: 2025Q1

REPORT INFORMATION
  Report Type: Spontaneous
  Country: US (occurrence: None)
  Receive Date: 20250109
  Receipt Date: 20250109
  Transmission Date: 20250409
  Serious: Yes (Hospitalization)
  Sender: FDA-CTU
  Company Number: None

PATIENT
  Sex: Male
  Weight: 95.1 kg

DRUGS (1)
  1. XELODA [Suspect]
     Active Substance: CAPECITABINE

REACTIONS (9)
  - Loss of consciousness [None]
  - Acute myocardial infarction [None]
  - Syncope [None]
  - Craniofacial fracture [None]
  - Fall [None]
  - Pulmonary embolism [None]
  - Cor pulmonale [None]
  - Hypotension [None]
  - Pulseless electrical activity [None]

NARRATIVE: CASE EVENT DATE: 20250106
